FAERS Safety Report 8600286 (Version 8)
Quarter: 2015Q1

REPORT INFORMATION
  Report Type: Report from Study
  Country: US (occurrence: US)
  Receive Date: 20120606
  Receipt Date: 20150321
  Transmission Date: 20150721
  Serious: Yes (Hospitalization)
  Sender: FDA-Public Use
  Company Number: US-BIOGENIDEC-2007BI025394

PATIENT
  Age: 58 Year
  Sex: Female

DRUGS (4)
  1. AVONEX [Suspect]
     Active Substance: INTERFERON BETA-1A
     Indication: MULTIPLE SCLEROSIS
     Route: 030
     Dates: start: 20000331, end: 20040608
  2. AVONEX [Suspect]
     Active Substance: INTERFERON BETA-1A
     Indication: MULTIPLE SCLEROSIS
     Route: 030
     Dates: start: 2006
  3. AVONEX [Suspect]
     Active Substance: INTERFERON BETA-1A
     Indication: MULTIPLE SCLEROSIS
     Route: 030
     Dates: start: 19961001
  4. AVONEX [Suspect]
     Active Substance: INTERFERON BETA-1A
     Indication: MULTIPLE SCLEROSIS
     Route: 030
     Dates: end: 2006

REACTIONS (25)
  - Head injury [Recovered/Resolved]
  - Eye operation [Recovered/Resolved]
  - Bronchitis [Not Recovered/Not Resolved]
  - Ovarian cyst [Recovered/Resolved]
  - Uterine cyst [Recovered/Resolved]
  - Cough [Not Recovered/Not Resolved]
  - Incontinence [Unknown]
  - Increased tendency to bruise [Unknown]
  - Osteopenia [Not Recovered/Not Resolved]
  - Wrong technique in drug usage process [Recovered/Resolved]
  - Surgery [Recovered/Resolved]
  - Menopausal symptoms [Recovered/Resolved]
  - Influenza like illness [Recovered/Resolved]
  - Hysterectomy [Recovered/Resolved]
  - Pain [Recovered/Resolved]
  - Animal bite [Recovered/Resolved]
  - Mobility decreased [Recovered/Resolved]
  - Fall [Recovered/Resolved]
  - Nasopharyngitis [Recovered/Resolved]
  - Pyrexia [Recovered/Resolved]
  - Chills [Recovered/Resolved]
  - Rectal prolapse [Recovered/Resolved]
  - Balance disorder [Recovered/Resolved]
  - Memory impairment [Not Recovered/Not Resolved]
  - Multiple sclerosis [Recovered/Resolved]

NARRATIVE: CASE EVENT DATE: 1996
